FAERS Safety Report 4526084-8 (Version None)
Quarter: 2004Q4

REPORT INFORMATION
  Report Type: 
  Country: None (occurrence: None)
  Receive Date: 20041129
  Receipt Date: 20040702
  Transmission Date: 20050328
  Serious: Yes (Hospitalization)
  Sender: FDA-Public Use
  Company Number: USA040671024

PATIENT
  Age: 68 Year
  Sex: Male
  Weight: 87 kg

DRUGS (6)
  1. ZYPREXA [Suspect]
     Indication: SCHIZOAFFECTIVE DISORDER
     Dosage: 20 MG/1 AT BEDTIME
     Dates: start: 19970101
  2. KLONOPIN [Concomitant]
  3. BUSPIRONE [Concomitant]
  4. AMBIEN [Concomitant]
  5. TRAZADONE (TRAZODONE) [Concomitant]
  6. GEODON [Concomitant]

REACTIONS (3)
  - DIABETES MELLITUS [None]
  - PNEUMONIA [None]
  - WEIGHT INCREASED [None]
